FAERS Safety Report 14664456 (Version 2)
Quarter: 2018Q4

REPORT INFORMATION
  Report Type: Spontaneous
  Country: US (occurrence: US)
  Receive Date: 20180321
  Receipt Date: 20181017
  Transmission Date: 20190204
  Serious: Yes (Other)
  Sender: FDA-Public Use
  Company Number: US-PFIZER INC-2018118174

PATIENT
  Age: 62 Year
  Sex: Female
  Weight: 68.4 kg

DRUGS (1)
  1. ELELYSO [Suspect]
     Active Substance: TALIGLUCERASE ALFA
     Indication: GAUCHER^S DISEASE
     Dosage: 5400 UNITS, BY INFUSION, EVERY TWO WEEKS
     Dates: start: 2013

REACTIONS (5)
  - Sinusitis [Recovered/Resolved with Sequelae]
  - Dyspnoea [Unknown]
  - Clostridium difficile infection [Recovered/Resolved]
  - Cyst [Not Recovered/Not Resolved]
  - Cough [Unknown]

NARRATIVE: CASE EVENT DATE: 2015
